FAERS Safety Report 8597595 (Version 4)
Quarter: 2016Q3

REPORT INFORMATION
  Report Type: Report from Study
  Country: US (occurrence: US)
  Receive Date: 20120605
  Receipt Date: 20160816
  Transmission Date: 20161109
  Serious: No
  Sender: FDA-Public Use
  Company Number: US-AMGEN-USASP2012029468

PATIENT
  Age: 52 Year
  Sex: Female

DRUGS (2)
  1. ENBREL [Suspect]
     Active Substance: ETANERCEPT
     Indication: RHEUMATOID ARTHRITIS
     Dosage: 50 MG, QWK
     Route: 065
     Dates: start: 20100101
  2. ENBREL [Suspect]
     Active Substance: ETANERCEPT
     Dosage: 25 MG, UNK
     Route: 065

REACTIONS (5)
  - Wrong technique in product usage process [Unknown]
  - Drug dispensing error [Unknown]
  - Underdose [Unknown]
  - Injection site pain [Recovered/Resolved]
  - Confusional state [Unknown]

NARRATIVE: CASE EVENT DATE: 20120430
